FAERS Safety Report 21437736 (Version 2)
Quarter: 2022Q4

REPORT INFORMATION
  Report Type: Report from Study
  Country: US (occurrence: US)
  Receive Date: 20221011
  Receipt Date: 20221110
  Transmission Date: 20230113
  Serious: No
  Sender: FDA-Public Use
  Company Number: US-ABBVIE-4146661

PATIENT
  Sex: Female

DRUGS (11)
  1. SKYRIZI [Suspect]
     Active Substance: RISANKIZUMAB-RZAA
     Indication: Psoriasis
     Route: 058
     Dates: start: 202106
  2. SKYRIZI [Suspect]
     Active Substance: RISANKIZUMAB-RZAA
     Route: 058
  3. PAXIL 20 MG TABLET [Concomitant]
     Indication: Product used for unknown indication
  4. PFIZER-BIONTECH COVID-19 VACCINE [Concomitant]
     Active Substance: TOZINAMERAN
     Indication: COVID-19 immunisation
     Dosage: ONE IN ONCE
     Route: 030
  5. TUMS 200(500)MG TAB CHEW. [Concomitant]
     Indication: Product used for unknown indication
  6. UREA 10 % CREAM(GM [Concomitant]
     Indication: Product used for unknown indication
  7. VITAMIN D3 50 MCG CAPSULE. [Concomitant]
     Indication: Product used for unknown indication
  8. LEVOTHYROXINE 100 MCG CAPSULE. [Concomitant]
     Indication: Product used for unknown indication
     Route: 048
  9. FLUAD QUAD 2022-2023 [Concomitant]
     Indication: Product used for unknown indication
  10. VITAMIN B12 2500 MCG TAB CHEW [Concomitant]
     Indication: Product used for unknown indication
  11. ARNICA LG LIQUID [Concomitant]
     Indication: Product used for unknown indication

REACTIONS (4)
  - Pruritus [Not Recovered/Not Resolved]
  - Swelling [Not Recovered/Not Resolved]
  - Skin exfoliation [Not Recovered/Not Resolved]
  - Erythema [Not Recovered/Not Resolved]
